FAERS Safety Report 20527072 (Version 3)
Quarter: 2022Q1

REPORT INFORMATION
  Report Type: Report from Study
  Country: DE (occurrence: DE)
  Receive Date: 20220228
  Receipt Date: 20220314
  Transmission Date: 20220423
  Serious: Yes (Death)
  Sender: FDA-Public Use
  Company Number: DE-BoehringerIngelheim-2022-BI-107852

PATIENT
  Age: 68 Year
  Sex: Male
  Weight: 120 kg

DRUGS (6)
  1. PREDNISOLONE [Suspect]
     Active Substance: PREDNISOLONE
     Indication: Myasthenia gravis
     Dosage: UNK
  2. DOCETAXEL [Suspect]
     Active Substance: DOCETAXEL
     Indication: Non-small cell lung cancer
     Dosage: 147 MILLIGRAM, QD
     Dates: start: 20211019, end: 20211108
  3. DOCETAXEL [Suspect]
     Active Substance: DOCETAXEL
     Dosage: 120 MILLIGRAM, QD
     Dates: start: 20211108, end: 20220110
  4. NINTEDANIB ESYLATE [Suspect]
     Active Substance: NINTEDANIB ESYLATE
     Indication: Non-small cell lung cancer
     Dosage: 400 MILLIGRAM, QD
     Route: 048
     Dates: start: 20211020, end: 20211025
  5. NINTEDANIB ESYLATE [Suspect]
     Active Substance: NINTEDANIB ESYLATE
     Dosage: 100 MILLIGRAM, BID (1-0-1)
     Route: 048
     Dates: start: 20211201, end: 20211207
  6. NINTEDANIB ESYLATE [Suspect]
     Active Substance: NINTEDANIB ESYLATE
     Dosage: 100 MILLIGRAM, BID
     Route: 048
     Dates: start: 20211222

REACTIONS (3)
  - Immunosuppression [Fatal]
  - Blood bilirubin increased [Recovered/Resolved]
  - Diarrhoea [Not Recovered/Not Resolved]

NARRATIVE: CASE EVENT DATE: 20211001
